FAERS Safety Report 12217132 (Version 1)
Quarter: 2016Q1

REPORT INFORMATION
  Report Type: Spontaneous
  Country: US (occurrence: US)
  Receive Date: 20160329
  Receipt Date: 20160329
  Transmission Date: 20160526
  Serious: No
  Sender: FDA-Public Use
  Company Number: US-AKRON, INC.-1049865

PATIENT
  Sex: Male

DRUGS (2)
  1. LORAZEPAM ORAL CONCENTRATE [Suspect]
     Active Substance: LORAZEPAM
     Route: 048
  2. LORAZEPAM. [Suspect]
     Active Substance: LORAZEPAM
     Route: 048

REACTIONS (1)
  - Drug ineffective [Unknown]
